FAERS Safety Report 22257026 (Version 4)
Quarter: 2023Q2

REPORT INFORMATION
  Report Type: Report from Study
  Country: IT (occurrence: IT)
  Receive Date: 20230427
  Receipt Date: 20230529
  Transmission Date: 20230722
  Serious: Yes (Hospitalization)
  Sender: FDA-Public Use
  Company Number: IT-BRISTOL-MYERS SQUIBB COMPANY-2023-055309

PATIENT
  Age: 72 Year
  Sex: Female

DRUGS (15)
  1. DARATUMUMAB [Suspect]
     Active Substance: DARATUMUMAB
     Indication: Plasma cell myeloma refractory
     Dosage: MOST RECENT DOSE ON 21-FEB-2023
     Route: 065
     Dates: start: 20200715, end: 20230221
  2. POMALIDOMIDE [Suspect]
     Active Substance: POMALIDOMIDE
     Indication: Plasma cell myeloma refractory
     Dosage: MOST RECENT DOSE ON 03-MAR-2023
     Route: 048
     Dates: start: 20200715, end: 20230303
  3. DEXAMETHASONE [Suspect]
     Active Substance: DEXAMETHASONE
     Indication: Plasma cell myeloma refractory
     Dosage: MOST RECENT DOSE ON 28-FEB-2023
     Route: 065
     Dates: start: 20200715, end: 20230228
  4. OMEPRAZOLE [Concomitant]
     Active Substance: OMEPRAZOLE
     Indication: Antacid therapy
     Dates: start: 20200619
  5. ACYCLOVIR [Concomitant]
     Active Substance: ACYCLOVIR
     Indication: Antiviral treatment
     Dates: start: 20200619
  6. ALLOPURINOL [Concomitant]
     Active Substance: ALLOPURINOL
     Indication: Gout
     Dates: start: 20200619
  7. RAMIPRIL [Concomitant]
     Active Substance: RAMIPRIL
     Indication: Thrombosis
     Route: 065
     Dates: start: 20200619
  8. RAMIPRIL [Concomitant]
     Active Substance: RAMIPRIL
     Dates: start: 20180901
  9. PALEXIA [Concomitant]
     Active Substance: TAPENTADOL HYDROCHLORIDE
     Indication: Pain
     Route: 065
     Dates: start: 20200619
  10. ACETAMINOPHEN [Concomitant]
     Active Substance: ACETAMINOPHEN
     Indication: Pain
     Dates: start: 20200619
  11. GABAPENTIN [Concomitant]
     Active Substance: GABAPENTIN
     Indication: Neuropathy peripheral
     Route: 065
     Dates: start: 20200619
  12. MODURETIC 5-50 [Concomitant]
     Active Substance: AMILORIDE HYDROCHLORIDE\HYDROCHLOROTHIAZIDE
     Indication: Polyuria
     Route: 065
     Dates: start: 20200619
  13. PREDNISONE [Concomitant]
     Active Substance: PREDNISONE
     Indication: Inflammation
     Dates: start: 20200619
  14. FILGRASTIM [Concomitant]
     Active Substance: FILGRASTIM
     Indication: Prophylaxis
     Dates: start: 20200725
  15. AMOXICILLIN TRIHYDRATE;CLAVULANATE POTASSIUM;LACTOBACILLUS ACIDOPHILUS [Concomitant]
     Indication: Cyst
     Dates: start: 20200820

REACTIONS (1)
  - Meningitis pneumococcal [Not Recovered/Not Resolved]

NARRATIVE: CASE EVENT DATE: 20230303
